FAERS Safety Report 8591351-8 (Version None)
Quarter: 2012Q3

REPORT INFORMATION
  Report Type: 
  Country: None (occurrence: None)
  Receive Date: 20120730
  Receipt Date: 20120725
  Transmission Date: 20120928
  Serious: Yes (Hospitalization)
  Sender: FDA-Public Use
  Company Number: 2011028719

PATIENT
  Sex: Female
  Weight: 61.2356 kg

DRUGS (13)
  1. TESSALON [Concomitant]
  2. ADVAIR HFA [Concomitant]
  3. BUPROPION HCL [Concomitant]
  4. DILTIAZEM [Concomitant]
  5. BENAZEPRIL HYDROCHLORIDE [Concomitant]
  6. SPIRIVA [Concomitant]
  7. TRAMADOL HCL [Concomitant]
  8. PROPRANOLOL [Concomitant]
  9. DICYCLOMINE [Concomitant]
  10. HIZENTRA [Suspect]
     Indication: IMMUNODEFICIENCY COMMON VARIABLE
     Dosage: SEE IMAGE
     Route: 058
  11. NEURONTIN [Concomitant]
  12. ALLEGRA [Concomitant]
  13. HIZENTRA [Suspect]

REACTIONS (19)
  - HEART RATE DECREASED [None]
  - VIRAL INFECTION [None]
  - RASH [None]
  - ERYTHEMA [None]
  - PRURITUS [None]
  - URTICARIA [None]
  - PYREXIA [None]
  - ARRHYTHMIA [None]
  - SKIN DISORDER [None]
  - CHEST DISCOMFORT [None]
  - FALL [None]
  - CONTUSION [None]
  - CHILLS [None]
  - ACCIDENT [None]
  - DYSPNOEA [None]
  - SWELLING [None]
  - HEADACHE [None]
  - ASTHMA [None]
  - NAUSEA [None]
